FAERS Safety Report 15366639 (Version 1)
Quarter: 2018Q3

REPORT INFORMATION
  Report Type: Spontaneous
  Country: US (occurrence: US)
  Receive Date: 20180901
  Receipt Date: 20180901
  Transmission Date: 20181010
  Serious: Yes (Disabling, Other)
  Sender: FDA-Public Use
  Company Number: None

PATIENT
  Age: 52 Year
  Sex: Female
  Weight: 43.29 kg

DRUGS (7)
  1. TRAZODONE [Concomitant]
     Active Substance: TRAZODONE HYDROCHLORIDE
  2. METFORMIN [Concomitant]
     Active Substance: METFORMIN HYDROCHLORIDE
  3. SIMVASTATIN. [Concomitant]
     Active Substance: SIMVASTATIN
  4. OCEAN SALINE NASAL SPRAY [Suspect]
     Active Substance: SODIUM CHLORIDE
     Indication: PULMONARY CONGESTION
     Dosage: ?          QUANTITY:1 SPRAY(S);?
     Route: 055
     Dates: start: 20180501, end: 20180810
  5. DIPHENHYDRAMINE. [Concomitant]
     Active Substance: DIPHENHYDRAMINE
  6. VITAMIN D [Concomitant]
     Active Substance: CHOLECALCIFEROL
  7. NATURE^S BOUNTY HAIR, SKIN + NAILS [Concomitant]

REACTIONS (9)
  - Facial pain [None]
  - Swollen tear duct [None]
  - Conjunctival irritation [None]
  - Eye irritation [None]
  - Product use issue [None]
  - Inflammation of lacrimal passage [None]
  - Dacryocystitis [None]
  - Lacrimation increased [None]
  - Eye discharge [None]

NARRATIVE: CASE EVENT DATE: 20180615
